FAERS Safety Report 10785189 (Version 1)
Quarter: 2015Q1

REPORT INFORMATION
  Report Type: Spontaneous
  Country: US (occurrence: None)
  Receive Date: 20150209
  Receipt Date: 20150209
  Transmission Date: 20150721
  Serious: Yes (Hospitalization)
  Sender: FDA-Public Use
  Company Number: NSR_01822_2015

PATIENT
  Age: 36 Year
  Sex: Female

DRUGS (2)
  1. PROPRANOLOL [Suspect]
     Active Substance: PROPRANOLOL\PROPRANOLOL HYDROCHLORIDE
     Indication: PRODUCT USED FOR UNKNOWN INDICATION
     Dosage: DF
  2. VERAPAMIL [Suspect]
     Active Substance: VERAPAMIL HYDROCHLORIDE
     Indication: PRODUCT USED FOR UNKNOWN INDICATION
     Dosage: DF

REACTIONS (9)
  - Aspartate aminotransferase increased [None]
  - Alanine aminotransferase increased [None]
  - Acute respiratory distress syndrome [None]
  - Hypotension [None]
  - Bradycardia [None]
  - Cardiac arrest [None]
  - Encephalopathy [None]
  - Overdose [None]
  - Toxicity to various agents [None]
